FAERS Safety Report 6434394-2 (Version None)
Quarter: 2009Q4

REPORT INFORMATION
  Report Type: 
  Country: None (occurrence: None)
  Receive Date: 20091110
  Receipt Date: 20080925
  Transmission Date: 20100525
  Serious: No
  Sender: FDA-Public Use
  Company Number: US-ASTRAZENECA-2009UW15126

PATIENT

DRUGS (4)
  1. PRILOSEC OTC [Suspect]
     Indication: HYPERCHLORHYDRIA
     Dosage: 1 TABLET, 1 /DAY FOR 8 DAYS
     Route: 048
     Dates: start: 20080917, end: 20080925
  2. PREVACID [Suspect]
     Dosage: UNKNOWN
     Route: 048
  3. WARFARIN SODIUM [Concomitant]
     Dosage: UNKNOWN
  4. RITUXAN [Concomitant]
     Indication: NEOPLASM MALIGNANT
     Dosage: UNKNOWN

REACTIONS (2)
  - ILL-DEFINED DISORDER [None]
  - LABELLED DRUG-DRUG INTERACTION MEDICATION ERROR [None]
